FAERS Safety Report 6678644-6 (Version None)
Quarter: 2010Q2

REPORT INFORMATION
  Report Type: 
  Country: None (occurrence: None)
  Receive Date: 20100413
  Receipt Date: 20100331
  Transmission Date: 20101027
  Serious: Yes (Other)
  Sender: FDA-Public Use
  Company Number: US-PFIZER INC-2010042045

PATIENT
  Sex: Female
  Weight: 79.365 kg

DRUGS (4)
  1. CHANTIX [Suspect]
     Indication: SMOKING CESSATION THERAPY
     Dosage: 0.5 MG, UNK
     Route: 048
     Dates: start: 20090101
  2. CHANTIX [Suspect]
     Dosage: 1.0 MG, 2X/DAY
     Dates: start: 20090101
  3. CHANTIX [Suspect]
     Dosage: 1 MG, 1X/DAY
     Dates: end: 20090701
  4. ALBUTEROL [Concomitant]
     Dosage: UNK

REACTIONS (6)
  - ABNORMAL DREAMS [None]
  - BLOOD DISORDER [None]
  - DYSPEPSIA [None]
  - GASTROOESOPHAGEAL REFLUX DISEASE [None]
  - INSOMNIA [None]
  - WEIGHT INCREASED [None]
